FAERS Safety Report 6891417-4 (Version None)
Quarter: 2010Q3

REPORT INFORMATION
  Report Type: 
  Country: None (occurrence: None)
  Receive Date: 20100731
  Receipt Date: 20070717
  Transmission Date: 20110219
  Serious: No
  Sender: FDA-Public Use
  Company Number: US-PFIZER INC-2007059025

PATIENT
  Sex: Female

DRUGS (1)
  1. FLAGYL I.V. [Suspect]
     Indication: DIVERTICULITIS
     Route: 042
     Dates: start: 20070715, end: 20070717

REACTIONS (1)
  - NEUTROPENIA [None]
